FAERS Safety Report 4883984-7 (Version None)
Quarter: 2006Q1

REPORT INFORMATION
  Report Type: 
  Country: None (occurrence: None)
  Receive Date: 20060112
  Receipt Date: 20060105
  Transmission Date: 20060701
  Serious: Yes (Hospitalization)
  Sender: FDA-Public Use
  Company Number: 200511853BBE

PATIENT
  Age: 9 Year
  Sex: Male
  Weight: 29.1 kg

DRUGS (2)
  1. GAMUNEX [Suspect]
     Indication: HYPOGAMMAGLOBULINAEMIA
     Dates: start: 20040329
  2. GAMUNEX [Suspect]
     Dates: start: 20040329

REACTIONS (4)
  - HEADACHE [None]
  - LETHARGY [None]
  - NAUSEA [None]
  - RALES [None]
